FAERS Safety Report 21850419 (Version 2)
Quarter: 2023Q1

REPORT INFORMATION
  Report Type: Spontaneous
  Country: LB (occurrence: LB)
  Receive Date: 20230111
  Receipt Date: 20230119
  Transmission Date: 20230417
  Serious: Yes (Hospitalization, Other)
  Sender: FDA-Public Use
  Company Number: LB-LUNDBECK-DKLU3056773

PATIENT
  Sex: Female
  Weight: 60 kg

DRUGS (4)
  1. ESCITALOPRAM OXALATE [Suspect]
     Active Substance: ESCITALOPRAM OXALATE
     Indication: Depression
     Dosage: OVERDOSE: PATIENT HAD TAKEN FULL BOX OF CIPRALEX 10 MG
     Route: 048
     Dates: start: 20221229, end: 20221229
  2. ESCITALOPRAM OXALATE [Suspect]
     Active Substance: ESCITALOPRAM OXALATE
     Dosage: 10 MG, QD
     Route: 048
     Dates: start: 202210, end: 20221229
  3. XANAX [Concomitant]
     Active Substance: ALPRAZOLAM
     Indication: Insomnia
     Dosage: 0.5 MG, QD
     Route: 048
     Dates: start: 202210, end: 20221229
  4. XANAX [Concomitant]
     Active Substance: ALPRAZOLAM
     Indication: Anxiety

REACTIONS (3)
  - Intentional overdose [Unknown]
  - Suicide attempt [Recovered/Resolved]
  - Therapy cessation [Unknown]

NARRATIVE: CASE EVENT DATE: 20221229
